FAERS Safety Report 9373881 (Version 2)
Quarter: 2013Q3

REPORT INFORMATION
  Report Type: Spontaneous
  Country: US (occurrence: US)
  Receive Date: 20130628
  Receipt Date: 20130726
  Transmission Date: 20140515
  Serious: Yes (Disabling, Other)
  Sender: FDA-Public Use
  Company Number: US-PAR PHARMACEUTICAL, INC-2013SCPR005982

PATIENT
  Sex: 0

DRUGS (3)
  1. METOCLOPRAMIDE [Suspect]
     Indication: IMPAIRED GASTRIC EMPTYING
     Dosage: 10 MG, QID
     Route: 048
     Dates: start: 20070328, end: 200711
  2. METOCLOPRAMIDE [Suspect]
     Indication: NAUSEA
  3. METOCLOPRAMIDE [Suspect]
     Indication: VOMITING

REACTIONS (5)
  - Dysarthria [Unknown]
  - Paraesthesia [Unknown]
  - Impaired work ability [Unknown]
  - Dyskinesia [Unknown]
  - Impaired driving ability [Unknown]
